FAERS Safety Report 20551884 (Version 4)
Quarter: 2022Q4

REPORT INFORMATION
  Report Type: Spontaneous
  Country: US (occurrence: US)
  Receive Date: 20220304
  Receipt Date: 20221117
  Transmission Date: 20230113
  Serious: No
  Sender: FDA-Public Use
  Company Number: US-BIOGEN-2021BI00980548

PATIENT
  Age: 40 Year
  Sex: Male

DRUGS (3)
  1. TECFIDERA [Suspect]
     Active Substance: DIMETHYL FUMARATE
     Indication: Product used for unknown indication
     Route: 050
     Dates: start: 20170101
  2. TECFIDERA [Suspect]
     Active Substance: DIMETHYL FUMARATE
     Route: 050
     Dates: start: 201712
  3. TECFIDERA [Suspect]
     Active Substance: DIMETHYL FUMARATE
     Route: 050
     Dates: start: 2017

REACTIONS (6)
  - Panic attack [Unknown]
  - Anxiety [Unknown]
  - Urinary tract infection [Unknown]
  - Sensitivity to weather change [Unknown]
  - Prostatic specific antigen increased [Unknown]
  - Flushing [Unknown]

NARRATIVE: CASE EVENT DATE: 20221115
